FAERS Safety Report 7455818-8 (Version None)
Quarter: 2011Q2

REPORT INFORMATION
  Report Type: 
  Country: None (occurrence: None)
  Receive Date: 20110503
  Receipt Date: 20110427
  Transmission Date: 20111010
  Serious: Yes (Life-Threatening, Hospitalization)
  Sender: FDA-Public Use
  Company Number: PHHY2011FI35833

PATIENT
  Sex: Female

DRUGS (11)
  1. AMARYL [Concomitant]
     Indication: DIABETES MELLITUS
     Dosage: 0-2 MG PER DAY
  2. OLANZAPINE [Concomitant]
     Indication: DEPRESSION
     Dosage: 10 MG TABLETS WITH DOSE OF 10 MG PER DAY
  3. CIPRALEX [Concomitant]
     Indication: DEPRESSION
     Dosage: 5 MG, PER DAY
  4. LISIPRIL [Concomitant]
     Indication: HYPERTENSION
     Dosage: 20 MG PER DAY
  5. NASACORT [Concomitant]
     Indication: NASAL DISORDER
  6. DEPRAKINE [Concomitant]
     Indication: DIABETES MELLITUS
     Dosage: 500 MG + 1000 MG PER DAY
  7. LORAZEPAM [Concomitant]
     Indication: DEPRESSION
     Dosage: 3 MG, PER DAY
  8. SIMVASTATIN [Concomitant]
     Indication: BLOOD CHOLESTEROL INCREASED
     Dosage: 20 MG, PER DAY
  9. THYROXIN [Concomitant]
     Indication: HYPOTHYROIDISM
     Dosage: 0.1 MG, UNK
  10. SELOKEN ZOC [Concomitant]
     Dosage: 47,5 MG TABLETS WITH DOSE OF HALF TABLETS (23,75 MG) PER DAY
  11. LEPONEX [Suspect]
     Indication: SCHIZOPHRENIA, DISORGANISED TYPE
     Dosage: 50 MG + 300 MG PER DAY
     Dates: start: 20090301, end: 20110216

REACTIONS (2)
  - NEUTROPENIA [None]
  - TONSILLITIS STREPTOCOCCAL [None]
